FAERS Safety Report 17816505 (Version 2)
Quarter: 2020Q2

REPORT INFORMATION
  Report Type: Spontaneous
  Country: US (occurrence: US)
  Receive Date: 20200522
  Receipt Date: 20200629
  Transmission Date: 20200714
  Serious: No
  Sender: FDA-Public Use
  Company Number: US-PFIZER INC-2020203009

PATIENT
  Age: 49 Year

DRUGS (1)
  1. CHANTIX [Suspect]
     Active Substance: VARENICLINE TARTRATE
     Dosage: UNK

REACTIONS (5)
  - Hypertension [Unknown]
  - Blood cholesterol increased [Unknown]
  - Oropharyngeal pain [Unknown]
  - Arterial occlusive disease [Unknown]
  - Chest pain [Unknown]
